FAERS Safety Report 9783961 (Version 2)
Quarter: 2014Q1

REPORT INFORMATION
  Report Type: Spontaneous
  Country: SE (occurrence: SE)
  Receive Date: 20131226
  Receipt Date: 20140225
  Transmission Date: 20141002
  Serious: Yes (Other)
  Sender: FDA-Public Use
  Company Number: SE-PFIZER INC-2013364662

PATIENT
  Age: 67 Year
  Sex: Male

DRUGS (6)
  1. SALAZOPYRIN [Suspect]
     Dosage: UNK
     Dates: start: 20130830, end: 201310
  2. WARAN [Concomitant]
     Indication: PULMONARY EMBOLISM
  3. PREDNISOLONE [Concomitant]
  4. SELOKEN ZOC [Concomitant]
     Dosage: 50 MG, UNK
  5. SERTRALINE [Concomitant]
  6. BEHEPAN [Concomitant]

REACTIONS (7)
  - Depressed mood [Recovered/Resolved]
  - Headache [Recovered/Resolved]
  - Glossodynia [Recovered/Resolved]
  - Cough [Recovered/Resolved]
  - Dyspnoea [Recovered/Resolved]
  - Palpitations [Recovered/Resolved]
  - Dysphonia [Recovered/Resolved]
